FAERS Safety Report 9004321 (Version 1)
Quarter: 2013Q1

REPORT INFORMATION
  Report Type: Spontaneous
  Country: US (occurrence: US)
  Receive Date: 20130108
  Receipt Date: 20130108
  Transmission Date: 20140127
  Serious: Yes (Death)
  Sender: FDA-Public Use
  Company Number: US-ASTRAZENECA-2013SE01166

PATIENT
  Age: 33 Year
  Sex: Female

DRUGS (8)
  1. HYDROCHLOROTHIAZIDE\LISINOPRIL [Suspect]
     Route: 048
  2. METFORMIN [Suspect]
     Route: 048
  3. CITALOPRAM [Suspect]
     Route: 048
  4. GLIMEPIRIDE [Suspect]
     Route: 048
  5. INSULIN [Suspect]
     Route: 048
  6. CLEANER [Suspect]
     Route: 048
  7. PRAVASTATIN [Suspect]
     Route: 048
  8. TRAZODONE [Suspect]
     Route: 048

REACTIONS (3)
  - Completed suicide [Fatal]
  - Toxicity to various agents [Fatal]
  - Cardio-respiratory arrest [Fatal]
